FAERS Safety Report 4728741-7 (Version None)
Quarter: 2005Q3

REPORT INFORMATION
  Report Type: 
  Country: None (occurrence: None)
  Receive Date: 20050729
  Receipt Date: 20050725
  Transmission Date: 20060218
  Serious: Yes (Congenital Anomaly)
  Sender: FDA-Public Use
  Company Number: US-GLAXOSMITHKLINE-A0567833A

PATIENT

DRUGS (3)
  1. LAMICTAL [Suspect]
     Indication: EPILEPSY
  2. DEPAKOTE ER [Suspect]
     Indication: EPILEPSY
  3. MYSOLINE [Concomitant]
     Indication: EPILEPSY

REACTIONS (3)
  - DRUG EXPOSURE DURING PREGNANCY [None]
  - HEART RATE DECREASED [None]
  - SPINA BIFIDA [None]
